FAERS Safety Report 5143816-9 (Version None)
Quarter: 2006Q4

REPORT INFORMATION
  Report Type: 
  Country: None (occurrence: None)
  Receive Date: 20061106
  Receipt Date: 20061026
  Transmission Date: 20070319
  Serious: Yes (Hospitalization)
  Sender: FDA-Public Use
  Company Number: PHRM2006FR02939

PATIENT
  Age: 22 Year
  Sex: Male

DRUGS (2)
  1. ESIDRIX [Suspect]
     Indication: NEPHROGENIC DIABETES INSIPIDUS
     Dosage: 50 MG, BID
     Route: 048
     Dates: end: 20061010
  2. INDOCID [Concomitant]
     Indication: NEPHROGENIC DIABETES INSIPIDUS
     Dosage: 50 MG, BID
     Route: 048

REACTIONS (8)
  - BLOOD POTASSIUM DECREASED [None]
  - HYPOKALAEMIA [None]
  - MUSCLE SPASMS [None]
  - NAUSEA [None]
  - PALPITATIONS [None]
  - POLYURIA [None]
  - THIRST [None]
  - WEIGHT DECREASED [None]
